FAERS Safety Report 4897028-4 (Version None)
Quarter: 2005Q4

REPORT INFORMATION
  Report Type: 
  Country: None (occurrence: None)
  Receive Date: 20051228
  Receipt Date: 20050912
  Transmission Date: 20060501
  Serious: Yes (Hospitalization)
  Sender: FDA-Public Use
  Company Number: USA040363537

PATIENT
  Age: 55 Year
  Sex: Female
  Weight: 102 kg

DRUGS (6)
  1. HUMALOG [Suspect]
     Indication: DIABETES MELLITUS
     Dates: start: 20030401
  2. HUMULIN R [Suspect]
     Indication: DIABETES MELLITUS
     Dates: start: 20030901
  3. HUMULIN N [Suspect]
     Indication: DIABETES MELLITUS
     Dates: start: 20050908, end: 20050908
  4. NOVOLIN N [Concomitant]
  5. ACTOS [Concomitant]
  6. LANTUS [Concomitant]

REACTIONS (14)
  - ALLERGENIC DESENSITISATION PROCEDURE [None]
  - BLOOD GLUCOSE INCREASED [None]
  - BLOOD PRESSURE INCREASED [None]
  - BURNING SENSATION [None]
  - CHEST DISCOMFORT [None]
  - CHEST PAIN [None]
  - DRUG HYPERSENSITIVITY [None]
  - DYSPNOEA [None]
  - MYALGIA [None]
  - NASAL DISCOMFORT [None]
  - NEUROPATHY [None]
  - NEUROSIS [None]
  - ORAL DISCOMFORT [None]
  - PAIN IN EXTREMITY [None]
